FAERS Safety Report 13516752 (Version 1)
Quarter: 2017Q2

REPORT INFORMATION
  Report Type: Spontaneous
  Country: US (occurrence: US)
  Receive Date: 20170504
  Receipt Date: 20170504
  Transmission Date: 20170830
  Serious: No
  Sender: FDA-Public Use
  Company Number: None

PATIENT
  Age: 61 Year
  Sex: Male
  Weight: 85.5 kg

DRUGS (2)
  1. MIRTAZAPINE. [Suspect]
     Active Substance: MIRTAZAPINE
     Indication: ANXIETY
     Dosage: ?          QUANTITY:1 TABLET(S); AT BEDTIME ORAL?
     Route: 048
     Dates: start: 20170405, end: 20170429
  2. MIRTAZAPINE. [Suspect]
     Active Substance: MIRTAZAPINE
     Indication: INSOMNIA
     Dosage: ?          QUANTITY:1 TABLET(S); AT BEDTIME ORAL?
     Route: 048
     Dates: start: 20170405, end: 20170429

REACTIONS (8)
  - Abnormal dreams [None]
  - Anxiety [None]
  - Product substitution issue [None]
  - Somnolence [None]
  - Heart rate abnormal [None]
  - Energy increased [None]
  - Initial insomnia [None]
  - Middle insomnia [None]

NARRATIVE: CASE EVENT DATE: 20170405
